FAERS Safety Report 18337703 (Version 1)
Quarter: 2020Q4

REPORT INFORMATION
  Report Type: Spontaneous
  Country: CN (occurrence: CN)
  Receive Date: 20201002
  Receipt Date: 20201002
  Transmission Date: 20210113
  Serious: Yes (Other)
  Sender: FDA-Public Use
  Company Number: CN-LUPIN PHARMACEUTICALS INC.-2020-04348

PATIENT
  Age: 53 Year
  Sex: Male

DRUGS (13)
  1. CLARITHROMYCIN. [Concomitant]
     Active Substance: CLARITHROMYCIN
     Indication: HEADACHE
  2. CEFTRIAXONE. [Concomitant]
     Active Substance: CEFTRIAXONE
     Indication: PYREXIA
     Dosage: UNK
     Route: 065
  3. LINEZOLID. [Suspect]
     Active Substance: LINEZOLID
     Indication: STAPHYLOCOCCAL INFECTION
     Dosage: 0.6 GRAM, BID
     Route: 042
  4. CEFIXIME. [Concomitant]
     Active Substance: CEFIXIME
     Indication: MYALGIA
  5. CEFIXIME. [Concomitant]
     Active Substance: CEFIXIME
     Indication: ARTHRALGIA
  6. CEFIXIME. [Concomitant]
     Active Substance: CEFIXIME
     Indication: PYREXIA
     Dosage: UNK
     Route: 065
  7. CLARITHROMYCIN. [Concomitant]
     Active Substance: CLARITHROMYCIN
     Indication: MYALGIA
  8. CLARITHROMYCIN. [Concomitant]
     Active Substance: CLARITHROMYCIN
     Indication: PYREXIA
     Dosage: UNK
     Route: 065
  9. CEFIXIME. [Concomitant]
     Active Substance: CEFIXIME
     Indication: COUGH
  10. CLARITHROMYCIN. [Concomitant]
     Active Substance: CLARITHROMYCIN
     Indication: COUGH
  11. CEFIXIME. [Concomitant]
     Active Substance: CEFIXIME
     Indication: HEADACHE
  12. CLARITHROMYCIN. [Concomitant]
     Active Substance: CLARITHROMYCIN
     Indication: ARTHRALGIA
  13. CEFTRIAXONE. [Concomitant]
     Active Substance: CEFTRIAXONE
     Indication: HEADACHE

REACTIONS (1)
  - Thrombocytopenia [Recovered/Resolved]
